FAERS Safety Report 8606936-X (Version None)
Quarter: 2012Q3

REPORT INFORMATION
  Report Type: 
  Country: None (occurrence: None)
  Receive Date: 20120820
  Receipt Date: 20120816
  Transmission Date: 20120928
  Serious: Yes (Other)
  Sender: FDA-Public Use
  Company Number: CN-ROCHE-1103333

PATIENT
  Sex: Female
  Weight: 65 kg

DRUGS (4)
  1. VINDESINE [Concomitant]
     Indication: DIFFUSE LARGE B-CELL LYMPHOMA STAGE IV
     Route: 041
     Dates: start: 20100527, end: 20100527
  2. MABTHERA [Suspect]
     Indication: DIFFUSE LARGE B-CELL LYMPHOMA STAGE IV
     Route: 041
     Dates: start: 20100525, end: 20100525
  3. PIRARUBICIN [Suspect]
     Indication: DIFFUSE LARGE B-CELL LYMPHOMA STAGE IV
     Route: 041
     Dates: start: 20100527, end: 20100527
  4. CYCLOPHOSPHAMIDE [Concomitant]
     Indication: DIFFUSE LARGE B-CELL LYMPHOMA STAGE IV
     Route: 041
     Dates: start: 20100527, end: 20100527

REACTIONS (1)
  - HEPATIC FUNCTION ABNORMAL [None]
